FAERS Safety Report 18570343 (Version 5)
Quarter: 2021Q3

REPORT INFORMATION
  Report Type: Spontaneous
  Country: FR (occurrence: FR)
  Receive Date: 20201202
  Receipt Date: 20210802
  Transmission Date: 20211014
  Serious: Yes (Other)
  Sender: FDA-Public Use
  Company Number: FR-ROCHE-2321387

PATIENT
  Age: 22 Year
  Sex: Female
  Weight: 58.3 kg

DRUGS (7)
  1. LAMICTAL [Concomitant]
     Active Substance: LAMOTRIGINE
     Indication: EPILEPSY
  2. NIVOLUMAB [Concomitant]
     Active Substance: NIVOLUMAB
     Dates: start: 201902, end: 201904
  3. ALECENSA [Suspect]
     Active Substance: ALECTINIB HYDROCHLORIDE
     Dosage: 450 MG MORNING AND EVENING
     Route: 048
     Dates: start: 20210113
  4. FYCOMPA [Concomitant]
     Active Substance: PERAMPANEL
     Indication: EPILEPSY
  5. ALECENSA [Suspect]
     Active Substance: ALECTINIB HYDROCHLORIDE
     Dosage: 450 MG MORNING AND EVENING
     Route: 048
     Dates: start: 20200612
  6. ALECENSA [Suspect]
     Active Substance: ALECTINIB HYDROCHLORIDE
     Indication: ANAPLASTIC LARGE-CELL LYMPHOMA
     Dosage: MORNING AND EVENING; 600 MG (4 CAPSULES AT 150 MG) TWICE A DAY; QS: 3 MONTHS
     Route: 048
     Dates: start: 201812, end: 201902
  7. ALECENSA [Suspect]
     Active Substance: ALECTINIB HYDROCHLORIDE
     Route: 048
     Dates: start: 20210503

REACTIONS (6)
  - Derealisation [Recovered/Resolved]
  - Suicidal ideation [Recovered/Resolved]
  - Off label use [Unknown]
  - Anxiety [Recovered/Resolved]
  - Hypotension [Unknown]
  - Anaemia [Unknown]

NARRATIVE: CASE EVENT DATE: 20200525
